FAERS Safety Report 15329702 (Version 4)
Quarter: 2018Q4

REPORT INFORMATION
  Report Type: Spontaneous
  Country: US (occurrence: US)
  Receive Date: 20180829
  Receipt Date: 20181114
  Transmission Date: 20190204
  Serious: No
  Sender: FDA-Public Use
  Company Number: US-UNITED THERAPEUTICS-UNT-2018-013316

PATIENT
  Age: 72 Year
  Sex: Female

DRUGS (9)
  1. ORENITRAM [Suspect]
     Active Substance: TREPROSTINIL
     Indication: PULMONARY ARTERIAL HYPERTENSION
     Dosage: 9.875 MG, 4 MG QAM/PM AND 1.875MG IN AFTERNOON
     Route: 048
     Dates: start: 20170303
  2. ORENITRAM [Suspect]
     Active Substance: TREPROSTINIL
     Dosage: 5.875 MG, QD
     Route: 048
  3. ORENITRAM [Suspect]
     Active Substance: TREPROSTINIL
     Indication: PULMONARY ARTERIAL HYPERTENSION
     Dosage: 9.875MG, 4MG QAM/PM AND 1.875MG IN AFTERNOON
     Route: 048
     Dates: start: 20170303
  4. ORENITRAM [Suspect]
     Active Substance: TREPROSTINIL
     Dosage: 3.875 MG, TID
     Route: 048
     Dates: start: 20150605
  5. ORENITRAM [Suspect]
     Active Substance: TREPROSTINIL
     Dosage: 5.875 MG, QD
     Route: 048
  6. ADCIRCA [Suspect]
     Active Substance: TADALAFIL
     Dosage: 10 MG, UNK
     Route: 048
     Dates: start: 20150305
  7. ORENITRAM [Suspect]
     Active Substance: TREPROSTINIL
     Dosage: 3.875 MG, TID
     Route: 048
     Dates: start: 20150605
  8. LETAIRIS [Suspect]
     Active Substance: AMBRISENTAN
     Indication: PULMONARY ARTERIAL HYPERTENSION
     Dosage: 10 MG, QD
     Route: 048
     Dates: start: 20090917
  9. ADCIRCA [Suspect]
     Active Substance: TADALAFIL
     Indication: PULMONARY ARTERIAL HYPERTENSION
     Dosage: 40 MG, QD
     Route: 048

REACTIONS (2)
  - Oedema peripheral [Not Recovered/Not Resolved]
  - Dyspnoea exertional [Not Recovered/Not Resolved]

NARRATIVE: CASE EVENT DATE: 20180820
